FAERS Safety Report 26027633 (Version 1)
Quarter: 2025Q4

REPORT INFORMATION
  Report Type: Spontaneous
  Country: CN (occurrence: CN)
  Receive Date: 20251111
  Receipt Date: 20251111
  Transmission Date: 20260118
  Serious: Yes (Hospitalization)
  Sender: PFIZER
  Company Number: CN-PFIZER INC-PV202500131486

PATIENT
  Age: 95 Year
  Sex: Female

DRUGS (5)
  1. TYGACIL [Suspect]
     Active Substance: TIGECYCLINE
     Indication: Bronchitis
     Dosage: 50 MG, 2X/DAY
     Route: 041
     Dates: start: 20251030, end: 20251101
  2. TYGACIL [Suspect]
     Active Substance: TIGECYCLINE
     Indication: Pneumonia bacterial
  3. TYGACIL [Suspect]
     Active Substance: TIGECYCLINE
     Indication: Pleural effusion
  4. TYGACIL [Suspect]
     Active Substance: TIGECYCLINE
     Indication: Lung neoplasm malignant
  5. TYGACIL [Suspect]
     Active Substance: TIGECYCLINE
     Indication: White blood cell count decreased

REACTIONS (5)
  - Decreased appetite [Recovering/Resolving]
  - Nausea [Recovering/Resolving]
  - Abdominal pain [Recovering/Resolving]
  - Feeding disorder [Recovering/Resolving]
  - Off label use [Unknown]

NARRATIVE: CASE EVENT DATE: 20251030
